FAERS Safety Report 20670692 (Version 1)
Quarter: 2022Q2

REPORT INFORMATION
  Report Type: Spontaneous
  Country: US (occurrence: None)
  Receive Date: 20220401
  Receipt Date: 20220401
  Transmission Date: 20220721
  Serious: No
  Sender: FDA-Public Use
  Company Number: None

PATIENT
  Age: 73 Year
  Sex: Female
  Weight: 71.21 kg

DRUGS (17)
  1. MEKINIST [Suspect]
     Active Substance: TRAMETINIB DIMETHYL SULFOXIDE
     Indication: Malignant melanoma
     Dosage: OTHER STRENGTH : 0.5;?FREQUENCY : DAILY;?
     Route: 048
  2. TAFINLAR [Suspect]
     Active Substance: DABRAFENIB MESYLATE
     Indication: Malignant melanoma
     Dosage: FREQUENCY : TWICE A DAY;?
     Route: 048
  3. Acyclovir Oral [Concomitant]
  4. Carvedilol Oral [Concomitant]
  5. Chlorthalidone Oral [Concomitant]
  6. CLOPIDOGREL [Concomitant]
     Active Substance: CLOPIDOGREL BISULFATE
  7. Bisulfate [Concomitant]
  8. Diclofanac [Concomitant]
  9. Potassiumlron Oral [Concomitant]
  10. LOSARTAN [Concomitant]
     Active Substance: LOSARTAN
  11. POTASSIUM [Concomitant]
     Active Substance: POTASSIUM
  12. ROSUVASTATIN [Concomitant]
     Active Substance: ROSUVASTATIN
  13. CALCIUM [Concomitant]
     Active Substance: CALCIUM
  14. SODIUM CHLORIDE [Concomitant]
     Active Substance: SODIUM CHLORIDE
  15. SPIRONOLACTONE [Concomitant]
     Active Substance: SPIRONOLACTONE
  16. TYLENOL EXTRA STRENGTH [Concomitant]
     Active Substance: ACETAMINOPHEN
  17. VITAMIN D3 [Concomitant]
     Active Substance: CHOLECALCIFEROL

REACTIONS (10)
  - Blood sodium decreased [None]
  - Dizziness [None]
  - Balance disorder [None]
  - Decreased appetite [None]
  - Mood altered [None]
  - Pain [None]
  - Insomnia [None]
  - Epistaxis [None]
  - Cerebrovascular accident [None]
  - Swelling [None]
